FAERS Safety Report 5930041-4 (Version None)
Quarter: 2008Q4

REPORT INFORMATION
  Report Type: 
  Country: None (occurrence: None)
  Receive Date: 20081021
  Receipt Date: 20081010
  Transmission Date: 20090506
  Serious: Yes (Hospitalization)
  Sender: FDA-Public Use
  Company Number: 238221J08USA

PATIENT
  Age: 43 Year
  Sex: Male

DRUGS (2)
  1. REBIF [Suspect]
     Indication: MULTIPLE SCLEROSIS
     Dosage: 44 MCG, 3 IN 1 WEEKS, SUBCUTANEOUS
     Route: 058
     Dates: start: 20070713
  2. BLOOD THINNER (ALL OTHER THERAPUTIC PRODUCTS) [Concomitant]

REACTIONS (10)
  - ABSCESS [None]
  - APPENDICITIS PERFORATED [None]
  - BLOOD DISORDER [None]
  - CONDITION AGGRAVATED [None]
  - INCISION SITE INFECTION [None]
  - INFECTION [None]
  - MULTIPLE SCLEROSIS [None]
  - PANCREATIC ABSCESS [None]
  - RENAL FAILURE [None]
  - STAPHYLOCOCCAL INFECTION [None]
